FAERS Safety Report 5160251-8 (Version None)
Quarter: 2006Q4

REPORT INFORMATION
  Report Type: 
  Country: None (occurrence: None)
  Receive Date: 20061129
  Receipt Date: 20061122
  Transmission Date: 20070319
  Serious: Yes (Other)
  Sender: FDA-Public Use
  Company Number: US-GLAXOSMITHKLINE-A0628554A

PATIENT
  Age: 69 Year
  Sex: Male

DRUGS (12)
  1. COREG [Suspect]
     Indication: CARDIOMYOPATHY
     Dosage: 6.25MG TWICE PER DAY
     Route: 048
  2. ADVAIR DISKUS 100/50 [Suspect]
     Indication: ASTHMA
     Dosage: 1PUFF TWICE PER DAY
     Route: 055
     Dates: start: 20050101
  3. WARFARIN SODIUM [Concomitant]
  4. ALBUTEROL [Concomitant]
  5. NORVASC [Concomitant]
  6. FUROSEMIDE [Concomitant]
  7. DIOVAN [Concomitant]
  8. DIGITEK [Concomitant]
  9. COLCHICINE [Concomitant]
  10. VITAMIN TAB [Concomitant]
  11. MECLIZINE HCL [Concomitant]
  12. SINGULAIR [Concomitant]

REACTIONS (8)
  - ASTHMA [None]
  - BRONCHOSPASM [None]
  - DIZZINESS [None]
  - DRUG INEFFECTIVE [None]
  - DYSPNOEA [None]
  - PRODUCTIVE COUGH [None]
  - VERTIGO [None]
  - VOMITING [None]
